FAERS Safety Report 16107795 (Version 2)
Quarter: 2019Q2

REPORT INFORMATION
  Report Type: Spontaneous
  Country: US (occurrence: US)
  Receive Date: 20190322
  Receipt Date: 20190513
  Transmission Date: 20190711
  Serious: No
  Sender: FDA-Public Use
  Company Number: US-GLAXOSMITHKLINE-US2019051625

PATIENT
  Age: 61 Year
  Sex: Female

DRUGS (3)
  1. PREDNISONE. [Concomitant]
     Active Substance: PREDNISONE
  2. ANORO ELLIPTA [Suspect]
     Active Substance: UMECLIDINIUM BROMIDE\VILANTEROL TRIFENATATE
     Indication: PULMONARY FIBROSIS
     Dosage: 2 PUFF(S), QD
     Route: 055
     Dates: start: 20190314, end: 20190314
  3. REMICADE [Concomitant]
     Active Substance: INFLIXIMAB

REACTIONS (18)
  - Mouth swelling [Unknown]
  - Diarrhoea [Unknown]
  - Overdose [Recovered/Resolved]
  - Product use in unapproved indication [Recovered/Resolved]
  - Poor venous access [Unknown]
  - Vein collapse [Unknown]
  - Pharyngeal swelling [Unknown]
  - Heart rate increased [Unknown]
  - Hypotension [Unknown]
  - Swollen tongue [Unknown]
  - Glossitis [Unknown]
  - Rash [Unknown]
  - Off label use [Recovered/Resolved]
  - Blood pressure increased [Unknown]
  - Oral mucosal eruption [Unknown]
  - Throat irritation [Unknown]
  - Stomatitis [Unknown]
  - Headache [Unknown]

NARRATIVE: CASE EVENT DATE: 20190314
